FAERS Safety Report 15726831 (Version 2)
Quarter: 2018Q4

REPORT INFORMATION
  Report Type: Spontaneous
  Country: FR (occurrence: FR)
  Receive Date: 20181217
  Receipt Date: 20181224
  Transmission Date: 20190205
  Serious: Yes (Other)
  Sender: FDA-Public Use
  Company Number: FR-JNJFOC-20181214130

PATIENT
  Age: 41 Year
  Sex: Male

DRUGS (2)
  1. MINOXIDIL 5 % [Suspect]
     Active Substance: MINOXIDIL
     Indication: ALOPECIA
     Dosage: 1ML IN MORNING AND EVENING
     Route: 003
     Dates: start: 20170724
  2. MINOXIDIL 5 % [Suspect]
     Active Substance: MINOXIDIL
     Route: 003

REACTIONS (2)
  - Infertility male [Not Recovered/Not Resolved]
  - Sperm analysis abnormal [Not Recovered/Not Resolved]

NARRATIVE: CASE EVENT DATE: 201811
